FAERS Safety Report 4827666-6 (Version None)
Quarter: 2005Q4

REPORT INFORMATION
  Report Type: 
  Country: None (occurrence: None)
  Receive Date: 20051114
  Receipt Date: 20050427
  Transmission Date: 20060501
  Serious: Yes (Death, Hospitalization)
  Sender: FDA-Public Use
  Company Number: US-MERCK-0504USA04744

PATIENT
  Age: 66 Year
  Sex: Male
  Weight: 86 kg

DRUGS (5)
  1. VIOXX [Suspect]
     Indication: MONARTHRITIS
     Route: 048
     Dates: start: 20020401, end: 20030414
  2. ALLEGRA [Concomitant]
     Route: 065
  3. ANUCORT [Concomitant]
     Route: 065
  4. APAP TAB [Concomitant]
     Route: 065
  5. PLETAL [Concomitant]
     Route: 065

REACTIONS (3)
  - GASTROOESOPHAGEAL REFLUX DISEASE [None]
  - HYPERTENSION [None]
  - MYOCARDIAL INFARCTION [None]
